FAERS Safety Report 5323492-2 (Version None)
Quarter: 2007Q2

REPORT INFORMATION
  Report Type: 
  Country: None (occurrence: None)
  Receive Date: 20070514
  Receipt Date: 20070503
  Transmission Date: 20071010
  Serious: Yes (Death)
  Sender: FDA-Public Use
  Company Number: SG-NOVOPROD-261495

PATIENT
  Sex: Female
  Weight: 45 kg

DRUGS (8)
  1. NOVOSEVEN [Suspect]
     Indication: TRAUMATIC HAEMORRHAGE
     Dosage: 3 DOSES
     Route: 042
     Dates: start: 20070307, end: 20070307
  2. FENTANYL [Concomitant]
     Indication: SEDATION
     Dosage: 25 UG, QD
     Route: 042
     Dates: start: 20070307, end: 20070307
  3. KETAMINE HCL [Concomitant]
     Indication: INTUBATION
     Dosage: 50 MG, QD
     Route: 042
     Dates: start: 20070307, end: 20070307
  4. SUCCINYLCHOLINE CHLORIDE [Concomitant]
     Indication: INTUBATION
     Dosage: 100 MG, QD
     Route: 042
     Dates: start: 20070307, end: 20070307
  5. CALCIUM CHLORIDE [Concomitant]
     Indication: RESUSCITATION
     Dosage: 10 ML, QD
     Route: 042
     Dates: start: 20070307, end: 20070307
  6. MANNITOL [Concomitant]
     Indication: BRAIN OEDEMA
     Dosage: 100 ML, QD
     Route: 042
     Dates: start: 20070307, end: 20070307
  7. OMEPRAZOLE [Concomitant]
     Indication: PROPHYLAXIS
     Dosage: 40 MG, QD
     Route: 042
     Dates: start: 20070307, end: 20070307
  8. MORPHINE [Concomitant]
     Indication: PAIN
     Dosage: 0 - 3 MG / HR
     Route: 042
     Dates: start: 20070307, end: 20070307

REACTIONS (2)
  - CEREBRAL HAEMORRHAGE [None]
  - DISSEMINATED INTRAVASCULAR COAGULATION [None]
